FAERS Safety Report 4939387-X (Version None)
Quarter: 2006Q1

REPORT INFORMATION
  Report Type: 
  Country: None (occurrence: None)
  Receive Date: 20060306
  Receipt Date: 20060220
  Transmission Date: 20060701
  Serious: Yes (Other)
  Sender: FDA-Public Use
  Company Number: CIP06000411

PATIENT
  Age: 24 Year
  Sex: Female

DRUGS (5)
  1. RISEDRONATE SODIUM [Suspect]
     Indication: OSTEOPOROSIS
     Dosage: 2.5 MG DAILY, ORAL
     Route: 048
     Dates: start: 20060115, end: 20060209
  2. STOGAR(LAFUTIDINE) [Suspect]
     Dosage: ORAL
     Route: 048
  3. PREDNISOLONE [Suspect]
  4. ALFAROL(ALFACALCIDOL) [Suspect]
     Dosage: ORAL
     Route: 048
  5. GASTROM(ECABET MONOSODIUM) [Suspect]
     Dosage: ORAL
     Route: 048

REACTIONS (2)
  - GRANULOCYTOPENIA [None]
  - WHITE BLOOD CELL COUNT DECREASED [None]
